FAERS Safety Report 10989092 (Version 8)
Quarter: 2017Q3

REPORT INFORMATION
  Report Type: Report from Study
  Country: JP (occurrence: JP)
  Receive Date: 20150406
  Receipt Date: 20170711
  Transmission Date: 20171127
  Serious: Yes (Death, Disabling)
  Sender: FDA-Public Use
  Company Number: JP-ROCHE-1560290

PATIENT
  Age: 24 Year
  Sex: Female
  Weight: 47 kg

DRUGS (8)
  1. RANMARK [Concomitant]
     Active Substance: DENOSUMAB
     Dosage: DOSE INTERVAL UNCERTAINTY
     Route: 041
     Dates: end: 20161212
  2. VEMURAFENIB. [Suspect]
     Active Substance: VEMURAFENIB
     Indication: MALIGNANT MELANOMA
     Route: 048
     Dates: start: 20150326, end: 20150331
  3. IPILIMUMAB [Concomitant]
     Active Substance: IPILIMUMAB
     Indication: MALIGNANT MELANOMA
     Route: 041
     Dates: start: 20160223, end: 20160427
  4. VEMURAFENIB. [Suspect]
     Active Substance: VEMURAFENIB
     Dosage: ANOTHER THERAPY ON 05/JUN/2016
     Route: 048
     Dates: start: 20160525
  5. PREDONINE [Suspect]
     Active Substance: PREDNISOLONE
     Indication: PRODUCT USED FOR UNKNOWN INDICATION
     Dosage: DOSAGE IS UNCERTAIN.
     Route: 065
  6. FEXOFENADINE HYDROCHLORIDE. [Concomitant]
     Active Substance: FEXOFENADINE HYDROCHLORIDE
     Indication: MALIGNANT MELANOMA
     Route: 048
     Dates: start: 20150305, end: 20150420
  7. VEMURAFENIB. [Suspect]
     Active Substance: VEMURAFENIB
     Indication: MALIGNANT MELANOMA
     Route: 048
     Dates: start: 20150305, end: 20150325
  8. VEMURAFENIB. [Suspect]
     Active Substance: VEMURAFENIB
     Route: 048
     Dates: start: 20150917, end: 20150917

REACTIONS (5)
  - Drug eruption [Recovered/Resolved]
  - Electrocardiogram QT prolonged [Recovered/Resolved]
  - Dermatitis acneiform [Recovered/Resolved]
  - Liver disorder [Recovering/Resolving]
  - Arthralgia [Recovered/Resolved]

NARRATIVE: CASE EVENT DATE: 20150310
